FAERS Safety Report 5549539-6 (Version None)
Quarter: 2007Q4

REPORT INFORMATION
  Report Type: 
  Country: None (occurrence: None)
  Receive Date: 20071212
  Receipt Date: 20071205
  Transmission Date: 20080405
  Serious: Yes (Hospitalization, Disabling)
  Sender: FDA-Public Use
  Company Number: PHRM2007FR02741

PATIENT
  Age: 68 Year
  Sex: Female

DRUGS (19)
  1. ZOMETA [Suspect]
     Indication: METASTASES TO BONE
     Route: 042
     Dates: start: 20030708, end: 20060411
  2. TAXOTERE [Concomitant]
     Dosage: 9 COURSES
     Dates: start: 20030708, end: 20040127
  3. CYCLOPHOSPHAMIDE + 5-FU + METHOTREXATE [Concomitant]
     Dosage: 2 COURSES
     Dates: start: 20040224, end: 20040323
  4. VINORELBINE [Concomitant]
     Dates: start: 20040427
  5. VINORELBINE [Concomitant]
     Dosage: 3 COURSES
     Dates: start: 20040521, end: 20040726
  6. VINORELBINE [Concomitant]
     Dosage: 10 COURSES
     Dates: start: 20040823, end: 20050520
  7. FLUOROURACIL [Concomitant]
     Dates: start: 20040427
  8. FLUOROURACIL [Concomitant]
     Dosage: 3 COURSES
     Dates: start: 20040521, end: 20040726
  9. FLUOROURACIL [Concomitant]
     Dosage: 10 COURSES
     Dates: start: 20040823, end: 20050520
  10. RADIOTHERAPY [Concomitant]
     Indication: METASTASES TO BONE
     Dates: start: 20050726, end: 20050809
  11. FASLODEX [Concomitant]
     Dosage: 1 DF, QMO
     Route: 030
     Dates: start: 20050922, end: 20051027
  12. GEMZAR [Concomitant]
     Dosage: 8 COURSES
     Dates: start: 20051115, end: 20060214
  13. CARBOPLATIN [Concomitant]
     Dosage: 8 COURSES
     Dates: start: 20051115, end: 20060214
  14. CYCLOPHOSPHAMIDE [Concomitant]
     Dosage: UNK, UNK
     Dates: start: 20060228, end: 20060726
  15. CYCLOPHOSPHAMIDE [Concomitant]
     Dates: start: 20060823, end: 20061213
  16. EPIRUBICIN [Concomitant]
     Dosage: UNK, UNK
     Dates: start: 20060228, end: 20060726
  17. EPIRUBICIN [Concomitant]
     Dates: start: 20060823, end: 20061213
  18. DEXRAZOXANE [Concomitant]
     Dates: start: 20060823, end: 20061213
  19. CARDIOXANE [Concomitant]
     Dates: start: 20060823, end: 20061213

REACTIONS (4)
  - BONE PAIN [None]
  - IMPAIRED HEALING [None]
  - OSTEONECROSIS [None]
  - PAIN IN JAW [None]
